FAERS Safety Report 4638321-X (Version None)
Quarter: 2005Q2

REPORT INFORMATION
  Report Type: 
  Country: None (occurrence: None)
  Receive Date: 20050418
  Receipt Date: 20050330
  Transmission Date: 20051028
  Serious: Yes (Other)
  Sender: FDA-Public Use
  Company Number: CH-MERCK-0503CHE00031

PATIENT
  Age: 42 Year
  Sex: Female

DRUGS (3)
  1. SINGULAIR [Suspect]
     Indication: ASTHMA
     Route: 048
     Dates: start: 20040517, end: 20040705
  2. FEXOFENADINE HYDROCHLORIDE [Concomitant]
     Route: 048
  3. ALBUTEROL SULFATE [Concomitant]
     Route: 065

REACTIONS (2)
  - DRUG INEFFECTIVE [None]
  - STATUS ASTHMATICUS [None]
